FAERS Safety Report 8264903-2 (Version None)
Quarter: 2012Q2

REPORT INFORMATION
  Report Type: 
  Country: None (occurrence: None)
  Receive Date: 20120406
  Receipt Date: 20120402
  Transmission Date: 20120825
  Serious: Yes (Other)
  Sender: FDA-Public Use
  Company Number: CA-SANOFI-AVENTIS-2012SA023305

PATIENT
  Age: 61 Year
  Sex: Female

DRUGS (4)
  1. AMIODARONE HYDROCHLORIDE [Suspect]
     Indication: VENTRICULAR ARRHYTHMIA
     Route: 065
  2. MOXIFLOXACIN [Suspect]
     Route: 065
  3. HYDROCHLOROTHIAZIDE [Suspect]
     Route: 065
  4. FUROSEMIDE [Suspect]
     Route: 065

REACTIONS (5)
  - TORSADE DE POINTES [None]
  - HYPOKALAEMIA [None]
  - HYPOMAGNESAEMIA [None]
  - ELECTROLYTE IMBALANCE [None]
  - ELECTROCARDIOGRAM QT PROLONGED [None]
